FAERS Safety Report 25427165 (Version 1)
Quarter: 2025Q2

REPORT INFORMATION
  Report Type: Spontaneous
  Country: US (occurrence: US)
  Receive Date: 20250612
  Receipt Date: 20250612
  Transmission Date: 20250717
  Serious: No
  Sender: AVYXA HOLDINGS, LLC
  Company Number: US-AVYXA HOLDINGS, LLC-2025AVY000029

PATIENT

DRUGS (1)
  1. DOCIVYX [Suspect]
     Active Substance: DOCETAXEL
     Indication: Breast cancer
     Route: 065

REACTIONS (3)
  - Infusion site induration [Recovered/Resolved]
  - Infusion site inflammation [Recovered/Resolved]
  - Infusion site erythema [Recovered/Resolved]
